FAERS Safety Report 9922180 (Version 2)
Quarter: 2014Q1

REPORT INFORMATION
  Report Type: Spontaneous
  Country: US (occurrence: US)
  Receive Date: 20140225
  Receipt Date: 20140314
  Transmission Date: 20141002
  Serious: Yes (Other)
  Sender: FDA-Public Use
  Company Number: US-PFIZER INC-2014051837

PATIENT
  Age: 45 Year
  Sex: Female

DRUGS (2)
  1. DEPO-PROVERA [Suspect]
     Indication: MENSTRUAL DISCOMFORT
     Dosage: 150 MG, EVERY 3 MONTHS
     Route: 030
     Dates: start: 2008
  2. DEPO-PROVERA [Suspect]
     Indication: DYSMENORRHOEA

REACTIONS (6)
  - Diabetes mellitus [Not Recovered/Not Resolved]
  - Depression [Not Recovered/Not Resolved]
  - Gastrooesophageal reflux disease [Not Recovered/Not Resolved]
  - Intentional drug misuse [Unknown]
  - Poor quality drug administered [Unknown]
  - Metrorrhagia [Unknown]
